FAERS Safety Report 20628352 (Version 1)
Quarter: 2022Q1

REPORT INFORMATION
  Report Type: Spontaneous
  Country: CN (occurrence: CN)
  Receive Date: 20220323
  Receipt Date: 20220323
  Transmission Date: 20220424
  Serious: Yes (Hospitalization, Disabling)
  Sender: FDA-Public Use
  Company Number: CN-ABBVIE-22K-035-4325178-00

PATIENT
  Age: 55 Year
  Sex: Male
  Weight: 65 kg

DRUGS (3)
  1. VALPROATE SODIUM [Suspect]
     Active Substance: VALPROATE SODIUM
     Indication: Epilepsy
     Route: 048
     Dates: start: 20200424, end: 20200515
  2. ATORVASTATIN CALCIUM [Suspect]
     Active Substance: ATORVASTATIN CALCIUM
     Indication: Cerebral infarction
     Route: 048
     Dates: start: 20200425, end: 20200604
  3. DIBUTYL PHTHALATE [Suspect]
     Active Substance: DIBUTYL PHTHALATE
     Indication: Cerebral infarction
     Route: 048
     Dates: start: 20200506, end: 20200710

REACTIONS (1)
  - Hepatic enzyme increased [Recovered/Resolved]

NARRATIVE: CASE EVENT DATE: 20200508
